FAERS Safety Report 13391160 (Version 2)
Quarter: 2017Q2

REPORT INFORMATION
  Report Type: Spontaneous
  Country: US (occurrence: US)
  Receive Date: 20170331
  Receipt Date: 20170505
  Transmission Date: 20170830
  Serious: No
  Sender: FDA-Public Use
  Company Number: US-GLAXOSMITHKLINE-US2017042390

PATIENT
  Age: 57 Year
  Sex: Female

DRUGS (1)
  1. TRANSDERM SCOP [Suspect]
     Active Substance: SCOPOLAMINE
     Indication: DRY MOUTH
     Dosage: 1.5 MG, UNK
     Dates: start: 201612

REACTIONS (4)
  - Skin irritation [Not Recovered/Not Resolved]
  - Skin exfoliation [Not Recovered/Not Resolved]
  - Product use in unapproved indication [Unknown]
  - Product quality issue [Unknown]
